FAERS Safety Report 20264057 (Version 5)
Quarter: 2022Q1

REPORT INFORMATION
  Report Type: Other
  Country: JP (occurrence: JP)
  Receive Date: 20211231
  Receipt Date: 20220217
  Transmission Date: 20220423
  Serious: Yes (Hospitalization, Other)
  Sender: FDA-Public Use
  Company Number: JP-CHUGAI-2021033698

PATIENT
  Age: 87 Year
  Sex: Male

DRUGS (2)
  1. BEVACIZUMAB [Suspect]
     Active Substance: BEVACIZUMAB
     Indication: Hepatocellular carcinoma
     Dosage: ON 06/DEC/2021: LAST DOSE ADMINISTERED
     Route: 041
     Dates: start: 20211115, end: 20211206
  2. ATEZOLIZUMAB [Suspect]
     Active Substance: ATEZOLIZUMAB
     Indication: Hepatocellular carcinoma
     Dosage: ON 06/DEC/2021, LAST DOSE ADMINISTERED
     Route: 041
     Dates: start: 20211115

REACTIONS (3)
  - Haemophagocytic lymphohistiocytosis [Unknown]
  - Arthralgia [Unknown]
  - Systemic inflammatory response syndrome [Unknown]

NARRATIVE: CASE EVENT DATE: 20211213
